FAERS Safety Report 25683899 (Version 2)
Quarter: 2025Q3

REPORT INFORMATION
  Report Type: Report from Study
  Country: TR (occurrence: TR)
  Receive Date: 20250815
  Receipt Date: 20250820
  Transmission Date: 20251020
  Serious: Yes (Congenital Anomaly, Other)
  Sender: ALEXION PHARMACEUTICALS
  Company Number: TR-ASTRAZENECA-202508TUR004160TR

PATIENT
  Age: 9 Month
  Sex: Female

DRUGS (1)
  1. SOLIRIS [Suspect]
     Active Substance: ECULIZUMAB
     Indication: Paroxysmal nocturnal haemoglobinuria

REACTIONS (6)
  - Congenital bladder anomaly [Unknown]
  - Gene mutation [Unknown]
  - Foetal exposure during pregnancy [Unknown]
  - Congenital urethral anomaly [Unknown]
  - Neurogenic bladder [Unknown]
  - Vesicoureteric reflux [Unknown]
